FAERS Safety Report 13863217 (Version 1)
Quarter: 2017Q3

REPORT INFORMATION
  Report Type: Report from Study
  Country: US (occurrence: US)
  Receive Date: 20170814
  Receipt Date: 20170814
  Transmission Date: 20171127
  Serious: Yes (Hospitalization)
  Sender: FDA-Public Use
  Company Number: US-ROCHE-1972548

PATIENT
  Age: 33 Year
  Sex: Female

DRUGS (4)
  1. HERCEPTIN [Suspect]
     Active Substance: TRASTUZUMAB
     Indication: BREAST CANCER FEMALE
     Route: 065
     Dates: start: 20160219, end: 20170202
  2. HERCEPTIN [Suspect]
     Active Substance: TRASTUZUMAB
     Indication: PLEURAL EFFUSION
     Route: 065
     Dates: start: 20170801
  3. PERJETA [Suspect]
     Active Substance: PERTUZUMAB
     Indication: PRODUCT USED FOR UNKNOWN INDICATION
     Route: 065
  4. DOCETAXEL. [Concomitant]
     Active Substance: DOCETAXEL

REACTIONS (6)
  - Tachypnoea [Unknown]
  - Orthopnoea [Unknown]
  - Cough [Not Recovered/Not Resolved]
  - Hypoxia [Unknown]
  - Dyspnoea [Not Recovered/Not Resolved]
  - Catheter site pain [Unknown]

NARRATIVE: CASE EVENT DATE: 20170721
